FAERS Safety Report 19181289 (Version 1)
Quarter: 2021Q2

REPORT INFORMATION
  Report Type: Spontaneous
  Country: JP (occurrence: JP)
  Receive Date: 20210426
  Receipt Date: 20210426
  Transmission Date: 20210717
  Serious: Yes (Hospitalization)
  Sender: FDA-Public Use
  Company Number: JP-GILEAD-2021-0526176

PATIENT
  Age: 82 Year
  Sex: Male

DRUGS (7)
  1. NOREPINEPHRINE. [Concomitant]
     Active Substance: NOREPINEPHRINE
  2. FUROSEMIDE. [Concomitant]
     Active Substance: FUROSEMIDE
     Dosage: 60 MG
  3. DEXAMETHASONE. [Concomitant]
     Active Substance: DEXAMETHASONE
     Indication: COVID-19
     Dosage: 6.6 MG
  4. MEROPENEM [MEROPENEM TRIHYDRATE] [Concomitant]
     Active Substance: MEROPENEM
     Dosage: 0.5 G
  5. CARPERITIDE [Concomitant]
     Active Substance: CARPERITIDE
  6. VEKLURY [Suspect]
     Active Substance: REMDESIVIR
     Indication: COVID-19
     Dosage: 200 MG
     Route: 065
  7. VEKLURY [Suspect]
     Active Substance: REMDESIVIR
     Dosage: 100 MG
     Route: 065

REACTIONS (2)
  - Metabolic acidosis [Recovering/Resolving]
  - Blood creatinine increased [Recovering/Resolving]
